FAERS Safety Report 4771471-6 (Version None)
Quarter: 2005Q3

REPORT INFORMATION
  Report Type: 
  Country: None (occurrence: None)
  Receive Date: 20050915
  Receipt Date: 20050830
  Transmission Date: 20060218
  Serious: Yes (Life-Threatening)
  Sender: FDA-Public Use
  Company Number: 2005PV001377

PATIENT
  Age: 77 Year
  Sex: Male
  Weight: 103.4201 kg

DRUGS (17)
  1. BYETTA [Suspect]
     Indication: DIABETES MELLITUS NON-INSULIN-DEPENDENT
     Dosage: 5 MCG; BID; SC
     Route: 058
     Dates: start: 20050606, end: 20050703
  2. BYETTA [Suspect]
     Indication: DIABETES MELLITUS NON-INSULIN-DEPENDENT
     Dosage: 5 MCG; BID; SC
     Route: 058
     Dates: start: 20050828, end: 20050831
  3. GLIPIZIDE [Concomitant]
  4. CORDARONE [Concomitant]
  5. COREG [Concomitant]
  6. ALDACTONE [Concomitant]
  7. VYTORIN [Concomitant]
  8. CAPOTEN [Concomitant]
  9. VERAPAMIL [Concomitant]
  10. NITROGLYCERIN [Concomitant]
  11. PLAVIX [Concomitant]
  12. LASIX [Concomitant]
  13. ASCORBIC ACID [Concomitant]
  14. VITAMIN E [Concomitant]
  15. VITAMIN B COMPLEX CAP [Concomitant]
  16. MULTI-VITAMINS [Concomitant]
  17. ASPIRIN [Concomitant]

REACTIONS (7)
  - ABDOMINAL PAIN UPPER [None]
  - ANOREXIA [None]
  - CARDIAC ARREST [None]
  - MUSCLE SPASMS [None]
  - NAUSEA [None]
  - POST PROCEDURAL COMPLICATION [None]
  - TREATMENT NONCOMPLIANCE [None]
